FAERS Safety Report 7166454-5 (Version None)
Quarter: 2010Q4

REPORT INFORMATION
  Report Type: 
  Country: None (occurrence: None)
  Receive Date: 20101216
  Receipt Date: 20101202
  Transmission Date: 20110411
  Serious: Yes (Other)
  Sender: FDA-Public Use
  Company Number: PHHY2010BR41347

PATIENT
  Age: 50 Year
  Sex: Male
  Weight: 70 kg

DRUGS (4)
  1. LEPONEX [Suspect]
     Indication: HALLUCINATION
     Dosage: 100 MG, QID
     Route: 048
  2. LEPONEX [Suspect]
     Dosage: 25 MG, BID
     Route: 048
     Dates: start: 20100607
  3. VALPROIC ACID [Concomitant]
     Indication: HEAD DISCOMFORT
     Dosage: 2 TABLETS, BID
  4. CAPTOPRIL [Concomitant]
     Indication: HYPERTENSION
     Dosage: 1 TABLET, BID
     Route: 048

REACTIONS (4)
  - ABNORMAL BEHAVIOUR [None]
  - LOGORRHOEA [None]
  - MALAISE [None]
  - WEIGHT INCREASED [None]
